FAERS Safety Report 11895783 (Version 1)
Quarter: 2016Q1

REPORT INFORMATION
  Report Type: Spontaneous
  Country: CA (occurrence: CA)
  Receive Date: 20160107
  Receipt Date: 20160107
  Transmission Date: 20160526
  Serious: Yes (Hospitalization)
  Sender: FDA-Public Use
  Company Number: CA-TEVA-622351ACC

PATIENT
  Age: 62 Year
  Sex: Female
  Weight: 67 kg

DRUGS (7)
  1. VENLAFAXINE XR [Concomitant]
     Active Substance: VENLAFAXINE HYDROCHLORIDE
  2. CLONAZEPAM. [Concomitant]
     Active Substance: CLONAZEPAM
  3. QUETIAPINE [Suspect]
     Active Substance: QUETIAPINE
     Indication: SEDATION
     Dosage: 12.5 MILLIGRAM DAILY;
     Route: 048
  4. METHADONE [Concomitant]
     Active Substance: METHADONE HYDROCHLORIDE
  5. QUETIAPINE [Suspect]
     Active Substance: QUETIAPINE
     Indication: DELIRIUM
  6. ACETAMINOPHEN. [Concomitant]
     Active Substance: ACETAMINOPHEN
  7. QUETIAPINE [Concomitant]
     Active Substance: QUETIAPINE

REACTIONS (4)
  - Acute hepatic failure [Recovered/Resolved]
  - Jaundice [Recovered/Resolved]
  - Loss of consciousness [Recovered/Resolved]
  - Encephalopathy [Recovered/Resolved]
